FAERS Safety Report 8447721-1 (Version None)
Quarter: 2012Q2

REPORT INFORMATION
  Report Type: 
  Country: None (occurrence: None)
  Receive Date: 20120619
  Receipt Date: 20120612
  Transmission Date: 20120825
  Serious: Yes (Death)
  Sender: FDA-Public Use
  Company Number: DE-CELGENEUS-062-C5013-12053200

PATIENT
  Age: 58 Year
  Sex: Male
  Weight: 90.5 kg

DRUGS (44)
  1. MORPHINE SULFATE [Concomitant]
     Dosage: 90 MILLIGRAM
     Route: 065
     Dates: start: 20120516, end: 20120523
  2. FENTANYL [Concomitant]
     Route: 065
     Dates: start: 20120524, end: 20120524
  3. PREGABALIN [Concomitant]
     Route: 065
     Dates: start: 20120516, end: 20120521
  4. FORMOTEROLHEMIFUMARAT [Concomitant]
     Indication: DYSPNOEA
     Route: 065
     Dates: start: 20120523, end: 20120525
  5. ALBUTEROL [Concomitant]
     Route: 065
     Dates: start: 20120522, end: 20120525
  6. POTASSIUM CHLORIDE [Concomitant]
     Route: 065
     Dates: start: 20120521, end: 20120525
  7. CERTOPARIN [Concomitant]
     Indication: THROMBOSIS PROPHYLAXIS
     Route: 065
     Dates: start: 20120516, end: 20120525
  8. COTRIM [Concomitant]
     Indication: INFECTION PROPHYLAXIS
     Route: 065
     Dates: end: 20120525
  9. BISOPROLOL FUMARATE [Concomitant]
     Indication: HYPERTENSION
     Dosage: 5 MILLIGRAM
     Route: 065
     Dates: end: 20120525
  10. DIGITOXIN TAB [Concomitant]
     Dosage: 20 MILLIGRAM
     Route: 065
     Dates: end: 20120525
  11. ACYCLOVIR [Concomitant]
     Dosage: 1200 MILLIGRAM
     Route: 065
     Dates: end: 20120525
  12. ACYCLOVIR [Concomitant]
     Dosage: 20 MILLIGRAM
     Route: 065
     Dates: end: 20120525
  13. CLONAZEPAM [Concomitant]
     Route: 065
     Dates: start: 20120524, end: 20120524
  14. MIDAZOLAM [Concomitant]
     Indication: ANAESTHESIA
     Route: 065
     Dates: start: 20120522, end: 20120522
  15. ALBUTEROL [Concomitant]
     Indication: DYSPNOEA
     Route: 065
     Dates: end: 20120525
  16. MORPHINE SULFATE [Concomitant]
     Route: 065
     Dates: start: 20120524, end: 20120525
  17. PIROXICAM [Concomitant]
     Dosage: 20 MILLIGRAM
     Route: 065
     Dates: end: 20120525
  18. MOXONIDIN [Concomitant]
     Indication: HYPERTENSION
     Dosage: .3 MILLIGRAM
     Route: 065
     Dates: end: 20120525
  19. MOXONIDIN [Concomitant]
     Dosage: 20 MILLIGRAM
     Route: 065
     Dates: end: 20120525
  20. RAMIPRIL [Concomitant]
     Indication: HYPERTENSION
     Dosage: 5 MILLIGRAM
     Route: 065
     Dates: end: 20120525
  21. RAMIPRIL [Concomitant]
     Dosage: 20 MILLIGRAM
     Route: 065
     Dates: end: 20120525
  22. OXYGEN [Concomitant]
     Indication: HYPOXIA
     Route: 065
     Dates: start: 20120522, end: 20120525
  23. PREGABALIN [Concomitant]
     Route: 065
     Dates: start: 20120522, end: 20120525
  24. POLYETHYLENE GLYCOL [Concomitant]
     Indication: PROPHYLAXIS
     Route: 065
     Dates: end: 20120525
  25. MOXONIDIN [Concomitant]
     Dosage: 30 MILLIGRAM
     Route: 065
     Dates: end: 20120525
  26. DIPYRONE TAB [Concomitant]
     Route: 065
     Dates: start: 20120521, end: 20120521
  27. SODIUM CHLORIDE [Concomitant]
     Indication: PROPHYLAXIS
     Route: 065
     Dates: start: 20120521, end: 20120521
  28. ALLOPURINOL [Concomitant]
     Indication: PROPHYLAXIS
     Route: 065
     Dates: start: 20120519, end: 20120525
  29. LENALIDOMIDE [Suspect]
     Indication: CHRONIC LYMPHOCYTIC LEUKAEMIA
     Route: 048
     Dates: start: 20120522, end: 20120524
  30. OMEPRAZOLE [Concomitant]
     Dosage: 20 MILLIGRAM
     Route: 065
     Dates: end: 20120525
  31. OMEPRAZOLE [Concomitant]
     Dosage: 20 MILLIGRAM
     Route: 065
     Dates: end: 20120525
  32. NIFEDIPINA [Concomitant]
     Indication: HYPERTENSION
     Dosage: 100 MILLIGRAM
     Route: 065
     Dates: start: 20101001, end: 20120525
  33. NIFEDIPINA [Concomitant]
     Dosage: 20 MILLIGRAM
     Route: 065
     Dates: end: 20120525
  34. DIGITOXIN TAB [Concomitant]
     Dosage: .1 MILLIGRAM
     Route: 065
     Dates: end: 20120525
  35. DIGITOXIN TAB [Concomitant]
     Dosage: 30 MILLIGRAM
     Route: 065
     Dates: end: 20120525
  36. RAMIPRIL [Concomitant]
     Dosage: 30 MILLIGRAM
     Route: 065
     Dates: end: 20120525
  37. ACYCLOVIR [Concomitant]
     Dosage: 30 MILLIGRAM
     Route: 065
     Dates: end: 20120525
  38. DEXAMETHASONE [Concomitant]
     Indication: DYSPNOEA
     Route: 065
     Dates: start: 20120523, end: 20120523
  39. ASPIRIN [Concomitant]
     Indication: THROMBOSIS PROPHYLAXIS
     Dosage: 100 MILLIGRAM
     Route: 065
     Dates: start: 20101001, end: 20120525
  40. PIROXICAM [Concomitant]
     Indication: POLYARTHRITIS
     Dosage: 20 MILLIGRAM
     Route: 065
     Dates: end: 20120525
  41. NIFEDIPINA [Concomitant]
     Dosage: 30 MILLIGRAM
     Route: 065
     Dates: end: 20120525
  42. BISOPROLOL FUMARATE [Concomitant]
     Dosage: 20 MILLIGRAM
     Route: 065
     Dates: end: 20120525
  43. BISOPROLOL FUMARATE [Concomitant]
     Dosage: 30 MILLIGRAM
     Route: 065
     Dates: end: 20120525
  44. LORAZEPAM [Concomitant]
     Route: 065
     Dates: start: 20120520, end: 20120525

REACTIONS (1)
  - CARDIOGENIC SHOCK [None]
